FAERS Safety Report 8151641-X (Version None)
Quarter: 2012Q1

REPORT INFORMATION
  Report Type: 
  Country: None (occurrence: None)
  Receive Date: 20120220
  Receipt Date: 20120206
  Transmission Date: 20120608
  Serious: Yes (Other)
  Sender: FDA-Public Use
  Company Number: BR-ROCHE-1007294

PATIENT
  Sex: Female

DRUGS (7)
  1. XOLAIR [Suspect]
     Dates: start: 20110823
  2. ALPRAZOLAM [Concomitant]
  3. XOLAIR [Suspect]
     Dates: start: 20100101
  4. XOLAIR [Suspect]
  5. XOLAIR [Suspect]
     Indication: ASTHMA
     Dates: start: 20100901
  6. XOLAIR [Suspect]
     Dosage: 2 AMPOULES
     Dates: start: 20110627
  7. XOLAIR [Suspect]
     Dates: start: 20110917

REACTIONS (16)
  - DYSPNOEA [None]
  - CRYING [None]
  - UNDERDOSE [None]
  - RESPIRATORY TRACT CONGESTION [None]
  - HYPERHIDROSIS [None]
  - ABDOMINAL PAIN [None]
  - VOMITING [None]
  - HYPERSENSITIVITY [None]
  - ROAD TRAFFIC ACCIDENT [None]
  - TREMOR [None]
  - PHARYNGEAL DISORDER [None]
  - BACK PAIN [None]
  - DRUG DISPENSING ERROR [None]
  - COUGH [None]
  - BONE PAIN [None]
  - FEELING COLD [None]
